FAERS Safety Report 4563665-X (Version None)
Quarter: 2005Q1

REPORT INFORMATION
  Report Type: 
  Country: None (occurrence: None)
  Receive Date: 20050124
  Receipt Date: 20050112
  Transmission Date: 20050727
  Serious: Yes (Hospitalization, Disabling, Other)
  Sender: FDA-Public Use
  Company Number: 1998-07-1114

PATIENT
  Age: 61 Year
  Sex: Male
  Weight: 95.2554 kg

DRUGS (6)
  1. GARAMYCIN [Suspect]
     Indication: DIABETIC FOOT
     Dosage: 500-480 MG*QD INTRAVENOUS
     Route: 042
     Dates: start: 19960808, end: 19960827
  2. TIMOPTIC OPHTHALMIC SOLUTION [Concomitant]
  3. INSULIN INJECTABLE [Concomitant]
  4. ASPIRIN [Concomitant]
  5. PROPINE OPHTHALMIC SOLUTION [Concomitant]
  6. CLINDAMYCIN [Concomitant]

REACTIONS (28)
  - ALTERED VISUAL DEPTH PERCEPTION [None]
  - CEREBRAL ATROPHY [None]
  - COORDINATION ABNORMAL [None]
  - DEAFNESS NEUROSENSORY [None]
  - DECREASED ACTIVITY [None]
  - DIABETES MELLITUS INADEQUATE CONTROL [None]
  - DIABETIC RETINOPATHY [None]
  - DIFFICULTY IN WALKING [None]
  - DISEASE PROGRESSION [None]
  - DYSSTASIA [None]
  - FALL [None]
  - FEELING ABNORMAL [None]
  - MOVEMENT DISORDER [None]
  - NAUSEA [None]
  - NEUROPATHY [None]
  - NEUROPATHY PERIPHERAL [None]
  - NYSTAGMUS [None]
  - OSCILLOPSIA [None]
  - OTOTOXICITY [None]
  - PAIN [None]
  - SENSORY LOSS [None]
  - TINNITUS [None]
  - VERTIGO [None]
  - VESTIBULAR DISORDER [None]
  - VISION BLURRED [None]
  - VISUAL ACUITY REDUCED [None]
  - VISUAL DISTURBANCE [None]
  - VOMITING [None]
